FAERS Safety Report 8786603 (Version 3)
Quarter: 2013Q1

REPORT INFORMATION
  Report Type: Spontaneous
  Country: CA (occurrence: CA)
  Receive Date: 20120914
  Receipt Date: 20130312
  Transmission Date: 20140127
  Serious: Yes (Death, Hospitalization)
  Sender: FDA-Public Use
  Company Number: PHHY2012CA078723

PATIENT
  Sex: Female

DRUGS (2)
  1. GILENYA [Suspect]
     Indication: RELAPSING-REMITTING MULTIPLE SCLEROSIS
     Dosage: 0.5 MG, QD
     Route: 048
     Dates: start: 20110707
  2. FAMPRIDINE [Suspect]
     Dosage: UNK UKN, UNK

REACTIONS (4)
  - Death [Fatal]
  - Loss of consciousness [Unknown]
  - Cerebrovascular accident [Unknown]
  - Encephalopathy [Unknown]
